FAERS Safety Report 5337142-2 (Version None)
Quarter: 2007Q2

REPORT INFORMATION
  Report Type: 
  Country: None (occurrence: None)
  Receive Date: 20070529
  Receipt Date: 20070522
  Transmission Date: 20071010
  Serious: No
  Sender: FDA-Public Use
  Company Number: US-BAXTER-2007BH004617

PATIENT
  Age: 17 Year
  Sex: Male

DRUGS (1)
  1. ATROPINE SULFATE [Suspect]
     Indication: SEDATION
     Dosage: DOSE UNIT:UNKNOWN
     Route: 065

REACTIONS (2)
  - BRADYCARDIA [None]
  - SYNCOPE VASOVAGAL [None]
